FAERS Safety Report 9923047 (Version 1)
Quarter: 2014Q1

REPORT INFORMATION
  Report Type: Spontaneous
  Country: US (occurrence: US)
  Receive Date: 20140225
  Receipt Date: 20140225
  Transmission Date: 20141002
  Serious: Yes (Other)
  Sender: FDA-Public Use
  Company Number: US-AMGEN-USASP2013068468

PATIENT
  Age: 57 Year
  Sex: Female
  Weight: 68.03 kg

DRUGS (1)
  1. ENBREL [Suspect]
     Indication: RHEUMATOID ARTHRITIS
     Dosage: 2 TIMES/WK
     Route: 058

REACTIONS (5)
  - Infection [Recovered/Resolved]
  - Blister [Recovered/Resolved]
  - Ulcer [Recovered/Resolved]
  - Arthropod bite [Unknown]
  - Impaired healing [Recovered/Resolved]
